FAERS Safety Report 4398705-4 (Version None)
Quarter: 2004Q3

REPORT INFORMATION
  Report Type: 
  Country: None (occurrence: None)
  Receive Date: 20040712
  Receipt Date: 20040621
  Transmission Date: 20050211
  Serious: Yes (Disabling)
  Sender: FDA-Public Use
  Company Number: GBS040615120

PATIENT
  Age: 60 Year
  Sex: Male

DRUGS (3)
  1. CIALIS [Suspect]
     Indication: ERECTILE DYSFUNCTION
     Dosage: 10 MG
     Dates: start: 20040510, end: 20040525
  2. LISINOPRIL [Concomitant]
  3. ZYDOL (TRAMADOL HYDROCHLORIDE) [Concomitant]

REACTIONS (3)
  - COORDINATION ABNORMAL [None]
  - HEADACHE [None]
  - MEMORY IMPAIRMENT [None]
